FAERS Safety Report 24108535 (Version 1)
Quarter: 2024Q3

REPORT INFORMATION
  Report Type: Report from Study
  Country: NL (occurrence: NL)
  Receive Date: 20240718
  Receipt Date: 20240718
  Transmission Date: 20241017
  Serious: Yes (Death)
  Sender: ABBVIE
  Company Number: NL-ABBVIE-5843673

PATIENT
  Age: 78 Year
  Sex: Male

DRUGS (13)
  1. CARBIDOPA\LEVODOPA [Suspect]
     Active Substance: CARBIDOPA\LEVODOPA
     Indication: Parkinson^s disease
     Dosage: MD: 8.0ML, CD: 2.8ML/H, ED: 1.50ML? DURATION TEXT: REMAINS AT 16 HOURS
     Route: 050
     Dates: start: 20240410, end: 20240617
  2. CARBIDOPA\LEVODOPA [Suspect]
     Active Substance: CARBIDOPA\LEVODOPA
     Route: 050
     Dates: start: 20161222
  3. CARBIDOPA\LEVODOPA [Suspect]
     Active Substance: CARBIDOPA\LEVODOPA
     Dosage: MD: 8.0ML, CD: 2.8ML/H, ED: 1.50ML? DURATION TEXT: REMAINS AT 16 HOURS
     Route: 050
     Dates: start: 20240617, end: 20240618
  4. CARBIDOPA\LEVODOPA [Suspect]
     Active Substance: CARBIDOPA\LEVODOPA
     Dosage: MD: 8.0ML, CD: 3.4ML/H, ED: 1.5ML? DURATION TEXT: REMAINS AT 16 HOURS
     Route: 050
     Dates: start: 20240202, end: 20240301
  5. CARBIDOPA\LEVODOPA [Suspect]
     Active Substance: CARBIDOPA\LEVODOPA
     Dosage: MD: 8.0ML, CD: 3.2ML/H, ED: 1.50ML? DURATION TEXT: REMAINS AT 16 HOURS
     Route: 050
     Dates: start: 20240301, end: 20240322
  6. CARBIDOPA\LEVODOPA [Suspect]
     Active Substance: CARBIDOPA\LEVODOPA
     Dosage: MD: 8.0ML, CD: 3.0ML/H, ED: 1.50ML? DURATION TEXT: REMAINS AT 16 HOURS
     Route: 050
     Dates: start: 20240322, end: 20240410
  7. SYMMETREL [Concomitant]
     Active Substance: AMANTADINE HYDROCHLORIDE
     Indication: Product used for unknown indication
  8. POLYETHYLENE GLYCOLS [Concomitant]
     Active Substance: POLYETHYLENE GLYCOLS
     Indication: Abnormal faeces
  9. OXAZEPAM [Concomitant]
     Active Substance: OXAZEPAM
     Indication: Product used for unknown indication
     Dosage: FREQUENCY TEXT: 2 OR 3 TIMES
  10. Microlax [Concomitant]
     Indication: Abnormal faeces
  11. CLOZAPINE [Concomitant]
     Active Substance: CLOZAPINE
     Indication: Hallucination
  12. OXYCODONE [Concomitant]
     Active Substance: OXYCODONE
     Indication: Musculoskeletal disorder
  13. BENSERAZIDE HYDROCHLORIDE\LEVODOPA [Concomitant]
     Active Substance: BENSERAZIDE HYDROCHLORIDE\LEVODOPA
     Indication: Parkinson^s disease

REACTIONS (1)
  - Parkinson^s disease [Fatal]
